FAERS Safety Report 6370687-5 (Version None)
Quarter: 2009Q3

REPORT INFORMATION
  Report Type: 
  Country: None (occurrence: None)
  Receive Date: 20090923
  Receipt Date: 20070515
  Transmission Date: 20100115
  Serious: Yes (Other)
  Sender: FDA-Public Use
  Company Number: US-ASTRAZENECA-2006UW25071

PATIENT
  Age: 385 Month
  Sex: Male
  Weight: 124.3 kg

DRUGS (11)
  1. SEROQUEL [Suspect]
     Route: 048
     Dates: start: 19990101
  2. SEROQUEL [Suspect]
     Route: 048
     Dates: start: 20000117, end: 20000208
  3. GEODON [Concomitant]
     Dates: start: 20020101
  4. MARIJUANA [Concomitant]
  5. ECSTASY [Concomitant]
  6. LSD [Concomitant]
  7. METFORMIN HCL [Concomitant]
     Dosage: 500-2000 MG
     Dates: start: 20041026
  8. BENZTROPINE MESYLATE [Concomitant]
     Dates: start: 20011108
  9. FLUPHENAZINE [Concomitant]
     Dosage: 12.5-25  MG
     Route: 030
     Dates: start: 20011108
  10. ZYPREXA [Concomitant]
     Dosage: 7.5 -15 MG
     Dates: start: 19990608
  11. VISTARIL [Concomitant]
     Dates: start: 20011108

REACTIONS (4)
  - DIABETES MELLITUS [None]
  - OBESITY [None]
  - TARDIVE DYSKINESIA [None]
  - TYPE 2 DIABETES MELLITUS [None]
